FAERS Safety Report 16108848 (Version 1)
Quarter: 2019Q1

REPORT INFORMATION
  Report Type: Spontaneous
  Country: US (occurrence: US)
  Receive Date: 20190323
  Receipt Date: 20190323
  Transmission Date: 20190418
  Serious: Yes (Other)
  Sender: FDA-Public Use
  Company Number: US-BAXTER-2019BAX006044

PATIENT

DRUGS (5)
  1. AZITHROMYCIN ANHYDROUS. [Suspect]
     Active Substance: AZITHROMYCIN ANHYDROUS
     Indication: DRUG THERAPY
     Dosage: ADMINISTERED IN ONE DOSE
     Route: 065
  2. PENTAMIDINE [Suspect]
     Active Substance: PENTAMIDINE
     Indication: DRUG THERAPY
     Route: 065
  3. FLUCYTOSINE. [Suspect]
     Active Substance: FLUCYTOSINE
     Indication: DRUG THERAPY
     Route: 065
  4. FLUCONAZOLE INJECTION, USP [Suspect]
     Active Substance: FLUCONAZOLE
     Indication: DRUG THERAPY
     Dosage: ADMINISTERED IN ONE DOSE
     Route: 065
  5. SULFADIAZINE. [Suspect]
     Active Substance: SULFADIAZINE
     Indication: DRUG THERAPY
     Route: 065

REACTIONS (3)
  - Infection [Not Recovered/Not Resolved]
  - Infection protozoal [Not Recovered/Not Resolved]
  - Central nervous system infection [Not Recovered/Not Resolved]
